FAERS Safety Report 8292722-X (Version None)
Quarter: 2012Q2

REPORT INFORMATION
  Report Type: 
  Country: None (occurrence: None)
  Receive Date: 20120417
  Receipt Date: 20120227
  Transmission Date: 20120825
  Serious: No
  Sender: FDA-Public Use
  Company Number: US-ASTRAZENECA-2012SE13298

PATIENT
  Age: 48 Year
  Sex: Male
  Weight: 81.6 kg

DRUGS (2)
  1. NEXIUM [Suspect]
     Indication: GASTROOESOPHAGEAL REFLUX DISEASE
     Route: 048
     Dates: start: 20020101, end: 20030101
  2. NEXIUM [Suspect]
     Route: 048
     Dates: start: 20030101, end: 20120101

REACTIONS (3)
  - THROAT IRRITATION [None]
  - DRUG INEFFECTIVE [None]
  - OESOPHAGEAL PAIN [None]
